FAERS Safety Report 23436896 (Version 1)
Quarter: 2024Q1

REPORT INFORMATION
  Report Type: Other
  Country: US (occurrence: None)
  Receive Date: 20240124
  Receipt Date: 20240124
  Transmission Date: 20240410
  Serious: Yes (Hospitalization)
  Sender: FDA-Public Use
  Company Number: US-ROCHE-3059484

PATIENT
  Age: 52 Year
  Sex: Male
  Weight: 129.39 kg

DRUGS (8)
  1. OCREVUS [Suspect]
     Active Substance: OCRELIZUMAB
     Indication: Multiple sclerosis
     Dosage: (PRESCRIBED AS INFUSE 600 MG IV ONCE EVERY 6 MONTHS)?DATE OF TREATMENT: 12/MAR/2018, 26/MAR/2018, 28
     Route: 042
     Dates: start: 2017
  2. AMANTADINE HYDROCHLORIDE [Concomitant]
     Active Substance: AMANTADINE HYDROCHLORIDE
  3. CLONAZEPAM [Concomitant]
     Active Substance: CLONAZEPAM
  4. BACLOFEN [Concomitant]
     Active Substance: BACLOFEN
  5. DALFAMPRIDINE [Concomitant]
     Active Substance: DALFAMPRIDINE
  6. GABAPENTIN [Concomitant]
     Active Substance: GABAPENTIN
  7. SILDENAFIL [Concomitant]
     Active Substance: SILDENAFIL
  8. TAMSULOSIN [Concomitant]
     Active Substance: TAMSULOSIN

REACTIONS (7)
  - Drug ineffective [Unknown]
  - Road traffic accident [Unknown]
  - Intervertebral disc protrusion [Not Recovered/Not Resolved]
  - Dysstasia [Not Recovered/Not Resolved]
  - Gait disturbance [Not Recovered/Not Resolved]
  - COVID-19 [Unknown]
  - General physical health deterioration [Not Recovered/Not Resolved]

NARRATIVE: CASE EVENT DATE: 20190101
